FAERS Safety Report 14171047 (Version 2)
Quarter: 2017Q4

REPORT INFORMATION
  Report Type: Report from Study
  Country: US (occurrence: US)
  Receive Date: 20171108
  Receipt Date: 20171201
  Transmission Date: 20180321
  Serious: No
  Sender: FDA-Public Use
  Company Number: US-ALEXION PHARMACEUTICALS INC.-A201712221

PATIENT
  Age: 62 Year
  Sex: Male
  Weight: 78.37 kg

DRUGS (3)
  1. SOLIRIS [Suspect]
     Active Substance: ECULIZUMAB
     Indication: PAROXYSMAL NOCTURNAL HAEMOGLOBINURIA
     Dosage: UNK
     Route: 065
  2. SOLIRIS [Suspect]
     Active Substance: ECULIZUMAB
     Dosage: 900 MG, Q2W
     Route: 042
     Dates: end: 20171002
  3. SOLIRIS [Suspect]
     Active Substance: ECULIZUMAB
     Dosage: 900 MG, Q2W
     Route: 042

REACTIONS (21)
  - Mean cell haemoglobin increased [Unknown]
  - Anaemia [Unknown]
  - Red blood cell count decreased [Unknown]
  - Nasopharyngitis [Not Recovered/Not Resolved]
  - Haemolysis [Not Recovered/Not Resolved]
  - Red cell distribution width increased [Unknown]
  - Neutrophil count decreased [Unknown]
  - Body temperature decreased [Unknown]
  - Blood calcium decreased [Unknown]
  - Inappropriate schedule of drug administration [Recovered/Resolved]
  - Sinusitis [Unknown]
  - Blood lactate dehydrogenase increased [Unknown]
  - Haematocrit decreased [Unknown]
  - Blood bilirubin increased [Unknown]
  - Basophil count increased [Unknown]
  - Protein total decreased [Unknown]
  - Chromaturia [Not Recovered/Not Resolved]
  - Fatigue [Unknown]
  - Haemoglobin decreased [Unknown]
  - White blood cell count decreased [Unknown]
  - Mean cell volume increased [Unknown]

NARRATIVE: CASE EVENT DATE: 20170920
